FAERS Safety Report 9681728 (Version 1)
Quarter: 2013Q4

REPORT INFORMATION
  Report Type: Spontaneous
  Country: US (occurrence: US)
  Receive Date: 20131111
  Receipt Date: 20131111
  Transmission Date: 20140711
  Serious: Yes (Hospitalization)
  Sender: FDA-Public Use
  Company Number: US-GLAXOSMITHKLINE-A1049129A

PATIENT
  Age: 70 Year
  Sex: Female

DRUGS (3)
  1. ADVAIR [Suspect]
     Indication: PRODUCT USED FOR UNKNOWN INDICATION
     Route: 065
  2. ARCAPTA [Suspect]
     Indication: PRODUCT USED FOR UNKNOWN INDICATION
     Route: 065
  3. STEROID [Suspect]
     Indication: KIDNEY INFECTION
     Route: 065

REACTIONS (7)
  - Investigation [Unknown]
  - Lung disorder [Unknown]
  - Glaucoma [Unknown]
  - Dyspnoea [Unknown]
  - Kidney infection [Unknown]
  - Eye disorder [Unknown]
  - Drug ineffective [Unknown]
